FAERS Safety Report 9492389 (Version 4)
Quarter: 2015Q2

REPORT INFORMATION
  Report Type: Spontaneous
  Country: US (occurrence: US)
  Receive Date: 20130830
  Receipt Date: 20150518
  Transmission Date: 20150821
  Serious: Yes (Death, Hospitalization, Disabling, Other)
  Sender: FDA-Public Use
  Company Number: US-MERCK-1308USA014457

PATIENT
  Sex: Female
  Weight: 77.98 kg

DRUGS (2)
  1. JANUMET [Suspect]
     Active Substance: METFORMIN HYDROCHLORIDE\SITAGLIPTIN PHOSPHATE
     Dosage: 50/500 MG, BID
     Route: 048
     Dates: start: 20110414
  2. JANUMET [Suspect]
     Active Substance: METFORMIN HYDROCHLORIDE\SITAGLIPTIN PHOSPHATE
     Indication: TYPE 2 DIABETES MELLITUS
     Dosage: 100 MG, QD
     Route: 048
     Dates: start: 20080101, end: 20110531

REACTIONS (20)
  - Metastasis [Unknown]
  - Osteoarthritis [Unknown]
  - Umbilical hernia [Unknown]
  - Intestinal obstruction [Unknown]
  - Somnolence [Unknown]
  - Inguinal hernia [Unknown]
  - Splenic vein thrombosis [Unknown]
  - Pleural effusion [Unknown]
  - Malignant ascites [Unknown]
  - Hypertension [Unknown]
  - Hyperlipidaemia [Unknown]
  - Gastric ulcer [Unknown]
  - Oedema peripheral [Unknown]
  - Renal impairment [Unknown]
  - Hepatic mass [Unknown]
  - Hiatus hernia [Unknown]
  - Diverticulum intestinal [Unknown]
  - Pancreatic carcinoma metastatic [Fatal]
  - Metastatic neoplasm [Unknown]
  - Chronic gastritis [Not Recovered/Not Resolved]

NARRATIVE: CASE EVENT DATE: 20110411
